FAERS Safety Report 5073376-2 (Version None)
Quarter: 2006Q3

REPORT INFORMATION
  Report Type: 
  Country: None (occurrence: None)
  Receive Date: 20060808
  Receipt Date: 20051025
  Transmission Date: 20061208
  Serious: Yes (Death, Life-Threatening, Hospitalization, Other)
  Sender: FDA-Public Use
  Company Number: US-AMGEN-US155583

PATIENT
  Sex: Female

DRUGS (4)
  1. NEULASTA [Suspect]
     Indication: CHEMOTHERAPY
     Route: 065
     Dates: start: 20050922
  2. FLUOROURACIL [Concomitant]
     Route: 042
     Dates: start: 20050921
  3. OXALIPLATIN [Concomitant]
     Route: 042
     Dates: start: 20050921
  4. LEUCOVORIN CALCIUM [Concomitant]
     Route: 042
     Dates: start: 20050921

REACTIONS (6)
  - ANOXIC ENCEPHALOPATHY [None]
  - ARTERIAL THROMBOSIS LIMB [None]
  - CARDIAC ARREST [None]
  - SPLENIC INFARCTION [None]
  - SPLENIC RUPTURE [None]
  - SPLENOMEGALY [None]
